FAERS Safety Report 6449832-9 (Version None)
Quarter: 2009Q4

REPORT INFORMATION
  Report Type: 
  Country: None (occurrence: None)
  Receive Date: 20091120
  Receipt Date: 20091112
  Transmission Date: 20100525
  Serious: Yes (Death, Life-Threatening, Hospitalization)
  Sender: FDA-Public Use
  Company Number: US-GENENTECH-294515

PATIENT
  Age: 65 Year
  Sex: Male

DRUGS (3)
  1. BEVACIZUMAB [Suspect]
     Indication: COLORECTAL CANCER METASTATIC
     Dosage: UNK
     Dates: start: 20090224
  2. CAPECITABINE [Suspect]
     Indication: COLORECTAL CANCER METASTATIC
     Dosage: 4000 MG, QD
     Dates: start: 20090224
  3. DIABETIC MEDICATION NOS [Concomitant]
     Indication: DIABETES MELLITUS

REACTIONS (3)
  - DEATH [None]
  - DEHYDRATION [None]
  - MENTAL STATUS CHANGES [None]
